FAERS Safety Report 25609200 (Version 4)
Quarter: 2025Q4

REPORT INFORMATION
  Report Type: Spontaneous
  Country: US (occurrence: US)
  Receive Date: 20250727
  Receipt Date: 20251226
  Transmission Date: 20260118
  Serious: Yes (Life-Threatening, Hospitalization, Other)
  Sender: GLENMARK
  Company Number: US-MLMSERVICE-20250709-PI571992-00291-1

PATIENT

DRUGS (3)
  1. ROSUVASTATIN CALCIUM [Interacting]
     Active Substance: ROSUVASTATIN CALCIUM
     Indication: Product used for unknown indication
     Dosage: 40 MILLIGRAM, QD, POTENTIALLY RECEIVING FIVE TIMES THE MAXIMUM DOSE
     Route: 065
     Dates: start: 2012
  2. EZETIMIBE [Interacting]
     Active Substance: EZETIMIBE
     Indication: Product used for unknown indication
     Dosage: UNK
     Route: 065
  3. DAROLUTAMIDE [Interacting]
     Active Substance: DAROLUTAMIDE
     Indication: Hormone-refractory prostate cancer
     Dosage: 300 MILLIGRAM, QD (WITH A TENTATIVE PLAN TO TITRATE UP TO 300 MG TWICE DAILY OR THE RECOMMENDED RENA
     Route: 065

REACTIONS (4)
  - Drug interaction [Recovering/Resolving]
  - Rhabdomyolysis [Recovering/Resolving]
  - Overdose [Unknown]
  - Incorrect dose administered [Unknown]
